FAERS Safety Report 16928135 (Version 1)
Quarter: 2019Q4

REPORT INFORMATION
  Report Type: Spontaneous
  Country: SG (occurrence: SG)
  Receive Date: 20191017
  Receipt Date: 20191017
  Transmission Date: 20200122
  Serious: Yes (Life-Threatening, Hospitalization)
  Sender: FDA-Public Use
  Company Number: SG-TEVA-2019-SG-1121912

PATIENT
  Age: 25 Year
  Sex: Male

DRUGS (11)
  1. AMLODIPINE [Suspect]
     Active Substance: AMLODIPINE BESYLATE
     Indication: SUICIDE ATTEMPT
     Dosage: 110 TABLETS
     Route: 048
  2. CALCIUM GLUCONATE. [Suspect]
     Active Substance: CALCIUM GLUCONATE
     Indication: SHOCK
     Route: 065
  3. ADRENALINE [Suspect]
     Active Substance: EPINEPHRINE
     Indication: SHOCK
     Route: 065
  4. ACTRAPID [Suspect]
     Active Substance: INSULIN HUMAN
     Indication: SHOCK
     Dosage: 1 UNIT/KG/HR
     Route: 042
  5. NORADRENALINE [Suspect]
     Active Substance: NOREPINEPHRINE
     Indication: SHOCK
     Route: 065
  6. NORMAL SALINE [Suspect]
     Active Substance: SODIUM CHLORIDE
     Indication: SHOCK
     Route: 065
  7. VASOPRESSIN. [Suspect]
     Active Substance: VASOPRESSIN
     Indication: SHOCK
     Route: 065
  8. METHYLENE BLUE. [Concomitant]
     Active Substance: METHYLENE BLUE
     Route: 042
  9. GLUCAGON. [Suspect]
     Active Substance: GLUCAGON
     Indication: SHOCK
     Route: 042
  10. PARACETAMOL [Suspect]
     Active Substance: ACETAMINOPHEN
     Indication: SUICIDE ATTEMPT
     Dosage: 26 TABLETS
     Route: 048
  11. ACTIVATED CHARCOAL. [Concomitant]
     Active Substance: ACTIVATED CHARCOAL
     Route: 050

REACTIONS (14)
  - Mental status changes [Recovering/Resolving]
  - Left ventricular dysfunction [Recovering/Resolving]
  - Right ventricular dysfunction [Recovering/Resolving]
  - Somnolence [Recovering/Resolving]
  - Leukocytosis [Recovering/Resolving]
  - Treatment failure [Unknown]
  - Lactic acidosis [Recovering/Resolving]
  - Tachycardia [Recovering/Resolving]
  - Toxicity to various agents [Unknown]
  - Overdose [Unknown]
  - Shock [Recovering/Resolving]
  - Hypotension [Recovering/Resolving]
  - Hypokalaemia [Recovering/Resolving]
  - Suicide attempt [Recovering/Resolving]
